FAERS Safety Report 9296798 (Version 1)
Quarter: 2013Q2

REPORT INFORMATION
  Report Type: Spontaneous
  Country: GB (occurrence: GB)
  Receive Date: 20130517
  Receipt Date: 20130517
  Transmission Date: 20140414
  Serious: Yes (Other)
  Sender: FDA-Public Use
  Company Number: GB-BANPHARM-20131310

PATIENT
  Sex: Female

DRUGS (2)
  1. IBUPROFEN UNKNOWN PRODUCT [Suspect]
     Dosage: 200 MG,
     Route: 048
  2. CO-CODAMOL [Suspect]

REACTIONS (1)
  - Anaphylactic reaction [Recovered/Resolved]
